FAERS Safety Report 5633053-3 (Version None)
Quarter: 2008Q1

REPORT INFORMATION
  Report Type: 
  Country: None (occurrence: None)
  Receive Date: 20080221
  Receipt Date: 20080211
  Transmission Date: 20080703
  Serious: Yes (Disabling)
  Sender: FDA-Public Use
  Company Number: DE-ALLERGAN-0801783US

PATIENT
  Age: 27 Year
  Sex: Female

DRUGS (1)
  1. BOTOX [Suspect]
     Indication: HEREDITARY SPASTIC PARAPLEGIA
     Dosage: 400 UNITS, UNK
     Route: 030

REACTIONS (1)
  - DYSSTASIA [None]
